FAERS Safety Report 5449063-5 (Version None)
Quarter: 2007Q3

REPORT INFORMATION
  Report Type: 
  Country: None (occurrence: None)
  Receive Date: 20070911
  Receipt Date: 20070827
  Transmission Date: 20080115
  Serious: Yes (Death)
  Sender: FDA-Public Use
  Company Number: US-JNJFOC-20070901497

PATIENT
  Sex: Female

DRUGS (4)
  1. RISPERDAL [Suspect]
  2. RISPERDAL [Suspect]
     Indication: ATTENTION DEFICIT/HYPERACTIVITY DISORDER
  3. DEPAKOTE [Concomitant]
  4. CELEXA [Concomitant]

REACTIONS (2)
  - HAEMANGIOMA [None]
  - LOSS OF CONSCIOUSNESS [None]
